FAERS Safety Report 10238154 (Version 2)
Quarter: 2014Q2

REPORT INFORMATION
  Report Type: Spontaneous
  Country: JP (occurrence: JP)
  Receive Date: 20140616
  Receipt Date: 20140627
  Transmission Date: 20141212
  Serious: Yes (Hospitalization, Other)
  Sender: FDA-Public Use
  Company Number: JP-ELI_LILLY_AND_COMPANY-JP201406001527

PATIENT
  Age: 53 Year
  Sex: Female

DRUGS (5)
  1. ZYPREXA [Suspect]
     Indication: DEPRESSION
     Dosage: 2.5 MG, UNK
     Route: 048
  2. QUETIAPINE FUMARATE [Suspect]
     Indication: DEPRESSION
     Dosage: UNK
     Route: 048
  3. REFLEX                             /01293201/ [Suspect]
     Indication: DEPRESSION
     Dosage: 30 MG, UNK
     Route: 048
  4. JZOLOFT [Suspect]
     Indication: DEPRESSION
     Dosage: 25 MG, UNK
     Route: 048
  5. VEGETAMIN B [Suspect]
     Indication: DEPRESSION
     Dosage: 2 DF, UNK
     Route: 048

REACTIONS (5)
  - Pleural effusion [Recovered/Resolved]
  - Renal failure acute [Recovered/Resolved]
  - Urinary retention [Recovered/Resolved]
  - Lung carcinoma cell type unspecified stage I [Recovered/Resolved]
  - Off label use [Not Recovered/Not Resolved]
